FAERS Safety Report 5354224-X (Version None)
Quarter: 2007Q2

REPORT INFORMATION
  Report Type: 
  Country: None (occurrence: None)
  Receive Date: 20070612
  Receipt Date: 20070601
  Transmission Date: 20071010
  Serious: Yes (Hospitalization)
  Sender: FDA-Public Use
  Company Number: US-ELI_LILLY_AND_COMPANY-US200706002135

PATIENT
  Age: 51 Year
  Sex: Female

DRUGS (3)
  1. HUMALOG [Suspect]
     Indication: DIABETES MELLITUS
     Dates: start: 20070101
  2. HUMULIN 70/30 [Suspect]
     Indication: DIABETES MELLITUS
     Dates: start: 20020101, end: 20070101
  3. LANTUS [Concomitant]
     Dosage: UNK, UNK
     Dates: start: 20070101

REACTIONS (3)
  - BLOOD GLUCOSE DECREASED [None]
  - CHEST PAIN [None]
  - ECZEMA [None]
